FAERS Safety Report 13133725 (Version 1)
Quarter: 2017Q1

REPORT INFORMATION
  Report Type: Report from Study
  Country: CA (occurrence: CA)
  Receive Date: 20170120
  Receipt Date: 20170120
  Transmission Date: 20170428
  Serious: Yes (Other)
  Sender: FDA-Public Use
  Company Number: CA-BEH-2016075475

PATIENT
  Age: 65 Year
  Sex: Female

DRUGS (3)
  1. METFORMIN [Concomitant]
     Active Substance: METFORMIN HYDROCHLORIDE
  2. HIZENTRA [Suspect]
     Active Substance: HUMAN IMMUNOGLOBULIN G
     Indication: PRIMARY IMMUNODEFICIENCY SYNDROME
     Dosage: 12 G, QW
     Route: 058
     Dates: start: 20140528
  3. INSULIN [Concomitant]
     Active Substance: INSULIN NOS
     Dosage: UNK
     Route: 065

REACTIONS (5)
  - Loss of control of legs [Unknown]
  - Back pain [Unknown]
  - Arthritis [Unknown]
  - Spinal operation [Recovering/Resolving]
  - Bone cyst [Recovering/Resolving]

NARRATIVE: CASE EVENT DATE: 201610
